FAERS Safety Report 15428708 (Version 1)
Quarter: 2018Q3

REPORT INFORMATION
  Report Type: Spontaneous
  Country: ES (occurrence: ES)
  Receive Date: 20180926
  Receipt Date: 20180926
  Transmission Date: 20181010
  Serious: Yes (Hospitalization, Other)
  Sender: FDA-Public Use
  Company Number: ES-AUROBINDO-AUR-APL-2018-046845

PATIENT
  Age: 85 Year
  Sex: Male

DRUGS (3)
  1. GABAPENTIN. [Suspect]
     Active Substance: GABAPENTIN
     Indication: TRIGEMINAL NEURALGIA
     Dosage: 300 MILLIGRAM, DAILY
     Route: 048
     Dates: start: 20160716, end: 20160718
  2. MORFINE [Interacting]
     Active Substance: MORPHINE
     Indication: DYSPNOEA
     Dosage: 3 MILLIGRAM, DAILY
     Route: 058
     Dates: start: 20160716, end: 20160718
  3. PREGABALIN. [Interacting]
     Active Substance: PREGABALIN
     Indication: TRIGEMINAL NEURALGIA
     Dosage: 75 MILLIGRAM, 3 TIMES A DAY
     Route: 048
     Dates: start: 2015, end: 20160718

REACTIONS (1)
  - Encephalopathy [Recovered/Resolved]

NARRATIVE: CASE EVENT DATE: 20160716
